FAERS Safety Report 8226279-6 (Version None)
Quarter: 2012Q1

REPORT INFORMATION
  Report Type: 
  Country: None (occurrence: None)
  Receive Date: 20120321
  Receipt Date: 20120314
  Transmission Date: 20120608
  Serious: Yes (Death, Hospitalization)
  Sender: FDA-Public Use
  Company Number: PHHO2012MX003511

PATIENT
  Sex: Male
  Weight: 57.5 kg

DRUGS (9)
  1. FLUTICASONE FUROATE [Concomitant]
     Indication: CHRONIC OBSTRUCTIVE PULMONARY DISEASE
     Dosage: 250 UG, BID
     Route: 048
     Dates: start: 20101214
  2. CAPTOPRIL [Concomitant]
     Indication: HYPERTENSION
     Dosage: 25 MG, QD
     Dates: start: 19930101
  3. VENTOLIN [Concomitant]
     Indication: CHRONIC OBSTRUCTIVE PULMONARY DISEASE
     Dosage: 100 UG, IF NECESSARY
     Dates: start: 19960101
  4. BLINDED TIOTROPIUM [Suspect]
     Indication: CHRONIC OBSTRUCTIVE PULMONARY DISEASE
     Dosage: CODE NOT BROKEN
     Dates: start: 20101214
  5. BLINDED NO TREATMENT RECEIVED [Suspect]
     Indication: CHRONIC OBSTRUCTIVE PULMONARY DISEASE
     Dosage: CODE NOT BROKEN
     Dates: start: 20101214
  6. LORAZEPAM [Concomitant]
     Indication: ANXIETY DISORDER
     Dosage: 1.5 MG, QD
     Dates: start: 20100801
  7. BLINDED NVA237 [Suspect]
     Indication: CHRONIC OBSTRUCTIVE PULMONARY DISEASE
     Dosage: CODE NOT BROKEN
     Dates: start: 20101214
  8. BLINDED QVA149 [Suspect]
     Indication: CHRONIC OBSTRUCTIVE PULMONARY DISEASE
     Dosage: CODE NOT BROKEN
     Dates: start: 20101214
  9. ASPIRIN [Concomitant]
     Indication: HYPERTENSION
     Dosage: 100 MG, QD
     Dates: start: 19930101

REACTIONS (2)
  - PULMONARY EMBOLISM [None]
  - CHRONIC OBSTRUCTIVE PULMONARY DISEASE [None]
